FAERS Safety Report 9753713 (Version 1)
Quarter: 2013Q4

REPORT INFORMATION
  Report Type: Spontaneous
  Country: US (occurrence: US)
  Receive Date: 20131213
  Receipt Date: 20131213
  Transmission Date: 20140711
  Serious: No
  Sender: FDA-Public Use
  Company Number: US-GILEAD-2010-0026586

PATIENT
  Sex: Female
  Weight: 75.75 kg

DRUGS (14)
  1. LETAIRIS [Suspect]
     Indication: PULMONARY ARTERIAL HYPERTENSION
     Route: 048
     Dates: start: 20090102
  2. FOLIC ACID [Concomitant]
  3. LEVOTHYROXINE [Concomitant]
  4. METHOTREXATE [Concomitant]
  5. NUFEDICAL XL [Concomitant]
  6. ASPIRIN [Concomitant]
  7. CALCIUM + D [Concomitant]
  8. CELLCEPT [Concomitant]
  9. PREDNISONE [Concomitant]
  10. ZOCOR [Concomitant]
  11. CLONAZEPAM [Concomitant]
  12. LOPRESSOR [Concomitant]
  13. LEXAPRO [Concomitant]
  14. PLAVIX [Concomitant]

REACTIONS (1)
  - Liver function test abnormal [Unknown]
